FAERS Safety Report 15338227 (Version 1)
Quarter: 2018Q3

REPORT INFORMATION
  Report Type: Report from Study
  Country: JP (occurrence: JP)
  Receive Date: 20180831
  Receipt Date: 20180831
  Transmission Date: 20181010
  Serious: Yes (Hospitalization)
  Sender: FDA-Public Use
  Company Number: JP-ACTELION-A-CH2017-153060

PATIENT
  Age: 73 Year
  Sex: Male

DRUGS (12)
  1. AMLODIPINE [Concomitant]
     Active Substance: AMLODIPINE BESYLATE
  2. BERAPROST NA [Concomitant]
     Active Substance: BERAPROST SODIUM
  3. ARTIST [Concomitant]
     Active Substance: CARVEDILOL
  4. OXYGEN. [Concomitant]
     Active Substance: OXYGEN
  5. PIMOBENDAN [Concomitant]
     Active Substance: PIMOBENDAN
  6. OPSUMIT [Suspect]
     Active Substance: MACITENTAN
     Indication: PULMONARY ARTERIAL HYPERTENSION
     Dosage: 10 MG, QD
     Route: 048
     Dates: start: 20160603, end: 20170517
  7. NEXIUM [Concomitant]
     Active Substance: ESOMEPRAZOLE MAGNESIUM
  8. REVATIO [Concomitant]
     Active Substance: SILDENAFIL CITRATE
  9. OPSUMIT [Suspect]
     Active Substance: MACITENTAN
     Dosage: 10 MG, QD
     Route: 048
     Dates: start: 20180426, end: 20180501
  10. DIART [Concomitant]
     Active Substance: AZOSEMIDE
  11. SPIRIVA [Concomitant]
     Active Substance: TIOTROPIUM BROMIDE MONOHYDRATE
  12. SAMSCA [Concomitant]
     Active Substance: TOLVAPTAN

REACTIONS (4)
  - Cardiac failure [Recovering/Resolving]
  - Condition aggravated [Unknown]
  - Cardiac failure congestive [Recovering/Resolving]
  - Scleroderma [Unknown]

NARRATIVE: CASE EVENT DATE: 20160711
